FAERS Safety Report 21792581 (Version 2)
Quarter: 2023Q1

REPORT INFORMATION
  Report Type: Report from Study
  Country: US (occurrence: US)
  Receive Date: 20221229
  Receipt Date: 20230111
  Transmission Date: 20230417
  Serious: Yes (Hospitalization)
  Sender: FDA-Public Use
  Company Number: US-SERVIER-S22013127

PATIENT

DRUGS (25)
  1. CYTARABINE [Suspect]
     Active Substance: CYTARABINE
     Indication: Acute lymphocytic leukaemia
     Dosage: 7 MG, PRN
     Route: 037
     Dates: start: 20220930, end: 20220930
  2. CYTARABINE [Suspect]
     Active Substance: CYTARABINE
     Dosage: 130 MG, PRN
     Route: 042
     Dates: start: 20221110, end: 20221113
  3. CYTARABINE [Suspect]
     Active Substance: CYTARABINE
     Dosage: 130 MG, PRN
     Route: 042
     Dates: start: 20221117, end: 20221120
  4. CYTARABINE [Suspect]
     Active Substance: CYTARABINE
     Dosage: 130 MG, PRN
     Route: 042
     Dates: start: 20221208, end: 20221211
  5. CYTARABINE [Suspect]
     Active Substance: CYTARABINE
     Dosage: 130 MG, PRN
     Route: 042
     Dates: start: 20221229, end: 20221229
  6. CYTARABINE [Suspect]
     Active Substance: CYTARABINE
     Dosage: 130 MG, PRN
     Route: 042
     Dates: start: 20230105, end: 20230105
  7. CYCLOPHOSPHAMIDE [Suspect]
     Active Substance: CYCLOPHOSPHAMIDE
     Indication: Acute lymphocytic leukaemia
     Dosage: 1700 MG, PRN
     Route: 042
     Dates: start: 20221110, end: 20221110
  8. CYCLOPHOSPHAMIDE [Suspect]
     Active Substance: CYCLOPHOSPHAMIDE
     Dosage: 1700 MG, PRN
     Route: 042
     Dates: start: 20221208, end: 20221208
  9. DAUNORUBICIN [Suspect]
     Active Substance: DAUNORUBICIN
     Indication: Acute lymphocytic leukaemia
     Dosage: 43 MG, PRN
     Route: 042
     Dates: start: 20220930, end: 20220930
  10. DAUNORUBICIN [Suspect]
     Active Substance: DAUNORUBICIN
     Dosage: 25 MG/M2, PRN
     Route: 042
     Dates: start: 20221007, end: 20221007
  11. DAUNORUBICIN [Suspect]
     Active Substance: DAUNORUBICIN
     Dosage: 25 MG/M2, PRN
     Route: 042
     Dates: start: 20221014, end: 20221014
  12. DAUNORUBICIN [Suspect]
     Active Substance: DAUNORUBICIN
     Dosage: 25 MG/M2, PRN
     Route: 042
     Dates: start: 20221021, end: 20221021
  13. METHOTREXATE [Suspect]
     Active Substance: METHOTREXATE
     Indication: Acute lymphocytic leukaemia
     Dosage: 15 MG, PRN
     Route: 037
     Dates: start: 20221007, end: 20221007
  14. VINCRISTINE [Suspect]
     Active Substance: VINCRISTINE
     Indication: Acute lymphocytic leukaemia
     Dosage: 2 MG, PRN
     Route: 042
     Dates: start: 20220930, end: 20220930
  15. VINCRISTINE [Suspect]
     Active Substance: VINCRISTINE
     Dosage: 2 MG, PRN
     Route: 042
     Dates: start: 20221007, end: 20221007
  16. VINCRISTINE [Suspect]
     Active Substance: VINCRISTINE
     Dosage: 2 MG, PRN
     Route: 042
     Dates: start: 20221014, end: 20221014
  17. VINCRISTINE [Suspect]
     Active Substance: VINCRISTINE
     Dosage: 2 MG, PRN
     Route: 042
     Dates: start: 20221021, end: 20221021
  18. VINCRISTINE [Suspect]
     Active Substance: VINCRISTINE
     Dosage: 2 MG, PRN
     Route: 042
     Dates: start: 20221121, end: 20221121
  19. VINCRISTINE [Suspect]
     Active Substance: VINCRISTINE
     Dosage: 2 MG, PRN
     Route: 042
     Dates: start: 20221201, end: 20221201
  20. DEXAMETHASONE [Concomitant]
     Active Substance: DEXAMETHASONE
     Indication: Acute lymphocytic leukaemia
     Dosage: 4 MG, BID
     Route: 048
     Dates: start: 20220930, end: 20221004
  21. DEXAMETHASONE [Concomitant]
     Active Substance: DEXAMETHASONE
     Dosage: 4 MG, BID
     Route: 042
     Dates: start: 20221005, end: 20221005
  22. DEXAMETHASONE [Concomitant]
     Active Substance: DEXAMETHASONE
     Dosage: 4 MG, BID
     Route: 048
     Dates: start: 20221006, end: 20221006
  23. DEXAMETHASONE [Concomitant]
     Active Substance: DEXAMETHASONE
     Dosage: 4 MG, BID
     Route: 048
     Dates: start: 20221014, end: 20221020
  24. INSULIN LISPRO [Concomitant]
     Active Substance: INSULIN LISPRO
     Indication: Diabetes mellitus
     Dosage: 5 DF, TID
     Route: 058
     Dates: start: 20201109
  25. ACYCLOVIR [Concomitant]
     Active Substance: ACYCLOVIR
     Indication: Prophylaxis
     Dosage: 400 MG, PRN
     Route: 048
     Dates: start: 20221125

REACTIONS (1)
  - Febrile neutropenia [Recovered/Resolved]

NARRATIVE: CASE EVENT DATE: 20221219
